FAERS Safety Report 7516639-0 (Version None)
Quarter: 2011Q2

REPORT INFORMATION
  Report Type: 
  Country: None (occurrence: None)
  Receive Date: 20110601
  Receipt Date: 20110525
  Transmission Date: 20111010
  Serious: Yes (Hospitalization)
  Sender: FDA-Public Use
  Company Number: CA-PFIZER INC-2011104190

PATIENT
  Age: 68 Year
  Sex: Male

DRUGS (9)
  1. METOCLOPRAMIDE [Concomitant]
  2. RAMIPRIL [Concomitant]
  3. LIPITOR [Concomitant]
  4. ADALAT [Concomitant]
  5. LOPERAMIDE [Concomitant]
  6. HYDROCHLOROTHIAZIDE [Concomitant]
  7. SUNITINIB MALATE [Suspect]
     Indication: METASTATIC RENAL CELL CARCINOMA
     Dosage: 50 MG, 1X/DAY
     Route: 048
     Dates: start: 20090812
  8. ASPIRIN [Concomitant]
  9. PERCOCET [Concomitant]

REACTIONS (1)
  - MYOCARDIAL INFARCTION [None]
